FAERS Safety Report 5983470-7 (Version None)
Quarter: 2008Q4

REPORT INFORMATION
  Report Type: 
  Country: None (occurrence: None)
  Receive Date: 20081126
  Receipt Date: 20080426
  Transmission Date: 20090506
  Serious: Yes (Life-Threatening, Hospitalization)
  Sender: FDA-Public Use
  Company Number: 2008BH004569

PATIENT
  Age: 46 Year
  Sex: Male

DRUGS (14)
  1. DIANEAL [Suspect]
     Indication: PERITONEAL DIALYSIS
     Dosage: IP
     Route: 033
     Dates: start: 20061204
  2. DIANEAL [Suspect]
     Indication: PERITONEAL DIALYSIS
     Dosage: IP
     Route: 033
     Dates: start: 20061204
  3. ZEMPLAR [Concomitant]
  4. INSULIN [Concomitant]
  5. RENOVITE [Concomitant]
  6. ALBUTEROL [Concomitant]
  7. COLACE [Concomitant]
  8. SENNA [Concomitant]
  9. LEVOTHYROXINE SODIUM [Concomitant]
  10. K-DUR [Concomitant]
  11. AMBIEN [Concomitant]
  12. PHOSLO [Concomitant]
  13. ADVAIR DISKUS 250/50 [Concomitant]
  14. RENAGEL [Concomitant]

REACTIONS (1)
  - FLUID OVERLOAD [None]
